FAERS Safety Report 22528847 (Version 1)
Quarter: 2023Q2

REPORT INFORMATION
  Report Type: Spontaneous
  Country: JP (occurrence: JP)
  Receive Date: 20230607
  Receipt Date: 20230607
  Transmission Date: 20230722
  Serious: Yes (Hospitalization, Other)
  Sender: FDA-Public Use
  Company Number: JP-ALKEM LABORATORIES LIMITED-JP-ALKEM-2023-02235

PATIENT
  Age: 82 Year
  Sex: Female

DRUGS (3)
  1. TACROLIMUS [Suspect]
     Active Substance: TACROLIMUS
     Indication: Product used for unknown indication
     Dosage: 2 MILLIGRAM
     Route: 065
  2. CEFTRIAXONE [Suspect]
     Active Substance: CEFTRIAXONE
     Indication: Enteritis
     Dosage: 2 GRAM, QD (EVERY 24 HOURS)
     Route: 042
  3. PREDNISOLONE [Suspect]
     Active Substance: PREDNISOLONE
     Indication: Product used for unknown indication
     Dosage: 9 MILLIGRAM
     Route: 065

REACTIONS (6)
  - Biliary obstruction [Unknown]
  - Cholangitis acute [Unknown]
  - Pancreatitis acute [Unknown]
  - Enteritis [Recovered/Resolved]
  - Pseudocholelithiasis [Unknown]
  - Campylobacter infection [Recovered/Resolved]
